FAERS Safety Report 25452956 (Version 1)
Quarter: 2025Q2

REPORT INFORMATION
  Report Type: Spontaneous
  Country: US (occurrence: US)
  Receive Date: 20250618
  Receipt Date: 20250618
  Transmission Date: 20250717
  Serious: No
  Sender: CALLIDITAS THERAPEUTICS AB
  Company Number: US-Calliditas-2025CAL01689

PATIENT
  Age: 73 Year
  Sex: Male

DRUGS (14)
  1. TARPEYO [Suspect]
     Active Substance: BUDESONIDE
     Indication: IgA nephropathy
     Route: 048
     Dates: start: 20241217
  2. SODIUM BICARBONATE [Concomitant]
     Active Substance: SODIUM BICARBONATE
  3. EDARBI [Concomitant]
     Active Substance: AZILSARTAN KAMEDOXOMIL
  4. FAMOTIDINE [Concomitant]
     Active Substance: FAMOTIDINE
  5. FARXIGA [Concomitant]
     Active Substance: DAPAGLIFLOZIN PROPANEDIOL
  6. ATORVASTATIN [Concomitant]
     Active Substance: ATORVASTATIN
  7. BENICAR [Concomitant]
     Active Substance: OLMESARTAN MEDOXOMIL
  8. CALCIUM\CHOLECALCIFEROL [Concomitant]
     Active Substance: CALCIUM\CHOLECALCIFEROL
  9. CELLCEPT [Concomitant]
     Active Substance: MYCOPHENOLATE MOFETIL
  10. FLOMAX [Concomitant]
     Active Substance: TAMSULOSIN HYDROCHLORIDE
  11. PREDNISONE [Concomitant]
     Active Substance: PREDNISONE
  12. RENAGEL [Concomitant]
     Active Substance: SEVELAMER HYDROCHLORIDE
  13. TRADJENTA [Concomitant]
     Active Substance: LINAGLIPTIN
  14. VASCEPA [Concomitant]
     Active Substance: ICOSAPENT ETHYL

REACTIONS (1)
  - Thirst [Unknown]
